FAERS Safety Report 5139027-3 (Version None)
Quarter: 2006Q4

REPORT INFORMATION
  Report Type: 
  Country: None (occurrence: None)
  Receive Date: 20061030
  Receipt Date: 20060608
  Transmission Date: 20070319
  Serious: No
  Sender: FDA-Public Use
  Company Number: US-GLAXOSMITHKLINE-A0608398A

PATIENT
  Sex: Female

DRUGS (2)
  1. ADVAIR HFA [Suspect]
     Indication: BRONCHITIS
     Dosage: 1PUFF TWICE PER DAY
     Route: 055
     Dates: start: 20050101, end: 20051201
  2. ANTIBIOTICS [Concomitant]

REACTIONS (8)
  - COUGH [None]
  - GLOSSODYNIA [None]
  - INSOMNIA [None]
  - LOCAL SWELLING [None]
  - ORAL CANDIDIASIS [None]
  - ORAL FUNGAL INFECTION [None]
  - TONGUE DISORDER [None]
  - TONGUE HAEMORRHAGE [None]
